FAERS Safety Report 24006305 (Version 1)
Quarter: 2024Q2

REPORT INFORMATION
  Report Type: Spontaneous
  Country: US (occurrence: US)
  Receive Date: 20240624
  Receipt Date: 20240624
  Transmission Date: 20240715
  Serious: Yes (Hospitalization)
  Sender: FDA-Public Use
  Company Number: US-TORRENT-00013627

PATIENT
  Age: 67 Year
  Sex: Male

DRUGS (5)
  1. LEVETIRACETAM [Suspect]
     Active Substance: LEVETIRACETAM
     Indication: Seizure
     Dosage: 3500 MG IN FIRST 24 HOUR
     Route: 065
  2. LORAZEPAM [Suspect]
     Active Substance: LORAZEPAM
     Indication: Seizure
     Dosage: 4 MG IN FIRST 24 HOUR
     Route: 065
  3. MIDAZOLAM [Suspect]
     Active Substance: MIDAZOLAM
     Indication: Seizure
     Dosage: 73 MG/H IN FIRST 24 HOUR
     Route: 042
  4. DIAZEPAM [Suspect]
     Active Substance: DIAZEPAM
     Indication: Seizure
     Dosage: 20 MG IN FIRST 24 HOUR
     Route: 065
  5. KETAMINE [Suspect]
     Active Substance: KETAMINE
     Indication: Seizure
     Dosage: 306.6 MG IN FIRST 24 HOUR
     Route: 040

REACTIONS (1)
  - Treatment failure [Unknown]
